FAERS Safety Report 9267559 (Version 2)
Quarter: 2013Q3

REPORT INFORMATION
  Report Type: Spontaneous
  Country: US (occurrence: US)
  Receive Date: 20130502
  Receipt Date: 20130809
  Transmission Date: 20140515
  Serious: Yes (Hospitalization)
  Sender: FDA-Public Use
  Company Number: US-BAYER-2013-051458

PATIENT
  Age: 42 Year
  Sex: Female

DRUGS (8)
  1. YASMIN [Suspect]
     Dosage: UNK
     Dates: start: 20051230, end: 20070519
  2. YAZ [Suspect]
  3. HYZAAR [Concomitant]
     Indication: CONTRACEPTION
  4. TOPROL [Concomitant]
  5. SINGULAIR [Concomitant]
  6. PROTONIX [Concomitant]
  7. ALLEGRA [Concomitant]
  8. POTASSIUM [Concomitant]

REACTIONS (9)
  - Deep vein thrombosis [None]
  - Thrombophlebitis superficial [None]
  - Pain [None]
  - Injury [None]
  - General physical health deterioration [None]
  - Anxiety [None]
  - Emotional distress [None]
  - Anhedonia [None]
  - Pain [None]
